FAERS Safety Report 22002592 (Version 1)
Quarter: 2023Q1

REPORT INFORMATION
  Report Type: Spontaneous
  Country: GB (occurrence: GB)
  Receive Date: 20230217
  Receipt Date: 20230217
  Transmission Date: 20230418
  Serious: Yes (Other)
  Sender: FDA-Public Use
  Company Number: GB-MHRA-ADR 27671690

PATIENT
  Sex: Female

DRUGS (1)
  1. OLANZAPINE [Suspect]
     Active Substance: OLANZAPINE
     Indication: Product used for unknown indication
     Dosage: 2.5 MILLIGRAM
     Route: 065

REACTIONS (5)
  - Cerebrovascular accident [Not Recovered/Not Resolved]
  - Facial paralysis [Not Recovered/Not Resolved]
  - Euphoric mood [Recovered/Resolved]
  - Gait disturbance [Not Recovered/Not Resolved]
  - Incontinence [Not Recovered/Not Resolved]
